FAERS Safety Report 18500634 (Version 1)
Quarter: 2020Q4

REPORT INFORMATION
  Report Type: Spontaneous
  Country: US (occurrence: US)
  Receive Date: 20201112
  Receipt Date: 20201112
  Transmission Date: 20210114
  Serious: No
  Sender: FDA-Public Use
  Company Number: None

PATIENT
  Age: 43 Year
  Sex: Female
  Weight: 76.5 kg

DRUGS (2)
  1. VISINE ALLERGY EYE RELIEF MULTI-ACTION [Suspect]
     Active Substance: NAPHAZOLINE HYDROCHLORIDE\PHENIRAMINE MALEATE
     Indication: MYDRIASIS
     Route: 047
     Dates: start: 20201021, end: 20201112
  2. ADVIL PRN [Concomitant]

REACTIONS (1)
  - Eye allergy [None]

NARRATIVE: CASE EVENT DATE: 20201112
